FAERS Safety Report 6721899-X (Version None)
Quarter: 2010Q2

REPORT INFORMATION
  Report Type: 
  Country: None (occurrence: None)
  Receive Date: 20100512
  Receipt Date: 20100503
  Transmission Date: 20101027
  Serious: Yes (Hospitalization, Other)
  Sender: FDA-Public Use
  Company Number: PHHO2010US06437

PATIENT
  Sex: Female

DRUGS (18)
  1. CGS 20267 T30748+TAB [Suspect]
     Indication: BREAST CANCER
     Dosage: UNK
     Route: 048
     Dates: start: 20070823, end: 20091009
  2. MIRAPEX [Concomitant]
     Indication: MUSCLE SPASMS
  3. ALLOPURINOL [Concomitant]
     Indication: GOUT
  4. IMODIUM [Concomitant]
     Indication: DIARRHOEA
  5. KLOR-CON [Concomitant]
  6. FUROSEMIDE [Concomitant]
     Indication: FLUID RETENTION
  7. CELEBREX [Concomitant]
     Indication: ARTHRITIS
  8. BYSTOLIC [Concomitant]
     Indication: HYPERTENSION
     Dosage: UNK
  9. ISOSORBIDE MONONITRATE [Concomitant]
     Indication: PROPHYLAXIS
     Dosage: UNK
  10. ATENOLOL [Concomitant]
     Indication: HYPERTENSION
  11. ASPIRIN [Concomitant]
     Indication: PROPHYLAXIS
  12. CLONAZEPAM [Concomitant]
     Indication: RESTLESS LEGS SYNDROME
  13. KEFLEX [Concomitant]
     Indication: BREAST INFLAMMATION
  14. DARVOCET-N 100 [Concomitant]
     Indication: ARTHRITIS
  15. VERAPAMIL [Concomitant]
     Indication: HYPERTENSION
  16. CARDIZEM [Concomitant]
  17. AMITRIPTLINE HYDROCHLORIDE TAB [Concomitant]
     Indication: INSOMNIA
  18. MICARDIS [Concomitant]

REACTIONS (16)
  - ANGINA PECTORIS [None]
  - ANGIOPLASTY [None]
  - ATRIAL FIBRILLATION [None]
  - CARDIOVERSION [None]
  - CATHETERISATION CARDIAC [None]
  - CHEST DISCOMFORT [None]
  - CORONARY ARTERIAL STENT INSERTION [None]
  - CORONARY ARTERY DISEASE [None]
  - CORONARY ARTERY STENOSIS [None]
  - FATIGUE [None]
  - FEELING ABNORMAL [None]
  - HYPERGLYCAEMIA [None]
  - HYPERLIPIDAEMIA [None]
  - MEDICAL DEVICE COMPLICATION [None]
  - MITRAL VALVE INCOMPETENCE [None]
  - RENAL FAILURE ACUTE [None]
